FAERS Safety Report 4752862-6 (Version None)
Quarter: 2005Q3

REPORT INFORMATION
  Report Type: 
  Country: None (occurrence: None)
  Receive Date: 20050714
  Receipt Date: 20040614
  Transmission Date: 20060218
  Serious: Yes (Hospitalization, Other)
  Sender: FDA-Public Use
  Company Number: 200414556US

PATIENT
  Sex: Female

DRUGS (6)
  1. TAXOTERE [Suspect]
     Indication: LUNG NEOPLASM MALIGNANT
     Dosage: 65 MG QW IV
     Route: 042
     Dates: start: 20040521, end: 20040521
  2. TAXOTERE [Suspect]
     Indication: LUNG NEOPLASM MALIGNANT
     Dosage: 65 MG QW IV
     Route: 042
     Dates: start: 20040528, end: 20040528
  3. CISPLATIN [Concomitant]
  4. CARBOPLATIN [Concomitant]
  5. GEMCITABINE HYDROCHLORIDE (GEMZAR) [Concomitant]
  6. VINORELBINE DITARTRATE (NAVELBINE ^PIERRE FABRE^) [Concomitant]

REACTIONS (5)
  - ABDOMINAL PAIN [None]
  - ANOREXIA [None]
  - COLITIS [None]
  - DIARRHOEA HAEMORRHAGIC [None]
  - WHITE BLOOD CELL COUNT DECREASED [None]
